FAERS Safety Report 13965191 (Version 1)
Quarter: 2017Q3

REPORT INFORMATION
  Report Type: Spontaneous
  Country: US (occurrence: US)
  Receive Date: 20170913
  Receipt Date: 20170913
  Transmission Date: 20171128
  Serious: Yes (Other)
  Sender: FDA-Public Use
  Company Number: US-LPDUSPRD-20171253

PATIENT
  Age: 23 Year
  Sex: Female

DRUGS (2)
  1. ESTROGEN [Concomitant]
     Active Substance: ESTROGENS
     Dosage: UNKNOWN
     Route: 048
  2. PROGESTERONE INJECTION (0750-01) [Suspect]
     Active Substance: PROGESTERONE
     Dosage: UNKNOWN
     Route: 030

REACTIONS (2)
  - Alveolitis allergic [Unknown]
  - Eosinophilic pneumonia acute [Unknown]
